FAERS Safety Report 19861240 (Version 1)
Quarter: 2021Q3

REPORT INFORMATION
  Report Type: Spontaneous
  Country: CA (occurrence: CA)
  Receive Date: 20210921
  Receipt Date: 20210921
  Transmission Date: 20211014
  Serious: Yes (Other)
  Sender: FDA-Public Use
  Company Number: CA-ASTRAZENECA-2021A727904

PATIENT
  Age: 61 Year
  Sex: Male

DRUGS (1)
  1. XIGDUO XR [Suspect]
     Active Substance: DAPAGLIFLOZIN PROPANEDIOL\METFORMIN HYDROCHLORIDE
     Dosage: ONE TABLET (5 MG/1000 MG TABLET) BY MOUTH TWICE DAILY
     Route: 048

REACTIONS (1)
  - Parathyroid tumour malignant [Unknown]
